FAERS Safety Report 8727442 (Version 3)
Quarter: 2012Q4

REPORT INFORMATION
  Report Type: 
  Country: US (occurrence: US)
  Receive Date: 20120816
  Receipt Date: 20121123
  Transmission Date: 20130627
  Serious: Yes (Other)
  Sender: FDA-Public Use
  Company Number: US-JNJFOC-20120805166

PATIENT

DRUGS (7)
  1. DOXORUBICIN [Suspect]
     Indication: ACUTE LYMPHOCYTIC LEUKAEMIA
     Dosage: over 15-30 minutes on day 1
     Route: 042
  2. BORTEZOMIB [Suspect]
     Indication: ACUTE LYMPHOCYTIC LEUKAEMIA
     Dosage: push on days 1, 4, 8, and 11
     Route: 042
  3. DEXAMETHASONE [Suspect]
     Indication: ACUTE LYMPHOCYTIC LEUKAEMIA
     Dosage: divided into 2 doses for 14 consecutive days from day 1
     Route: 048
  4. VINCRISTINE [Suspect]
     Indication: ACUTE LYMPHOCYTIC LEUKAEMIA
     Dosage: by push (2 mg maximum dose) was administered intravenously by push day 1, 8, 15, and 22
     Route: 042
  5. PEG-ASPARAGINASE [Suspect]
     Indication: ACUTE LYMPHOCYTIC LEUKAEMIA
     Dosage: pegylated 2500 units/m2/dose given intravenously as 4 weekly doses
     Route: 030
  6. CYTARABINE [Suspect]
     Indication: ACUTE LYMPHOCYTIC LEUKAEMIA
     Dosage: day 1 with no CNS involvement + on days 8, 15 + 22 with CNS involvement
     Route: 037
  7. METHOTREXATE [Suspect]
     Indication: ACUTE LYMPHOCYTIC LEUKAEMIA
     Dosage: who had no CNS involvement- day 15;
     Route: 037

REACTIONS (3)
  - Hypoxia [Recovered/Resolved]
  - Bacterial sepsis [Recovered/Resolved]
  - Off label use [Unknown]
